FAERS Safety Report 23341034 (Version 1)
Quarter: 2023Q4

REPORT INFORMATION
  Report Type: Other
  Country: US (occurrence: US)
  Receive Date: 20231227
  Receipt Date: 20231227
  Transmission Date: 20240110
  Serious: Yes (Hospitalization)
  Sender: FDA-Public Use
  Company Number: US-ALVOGEN-2023092791

PATIENT
  Age: 67 Year
  Sex: Female

DRUGS (2)
  1. DAPSONE [Suspect]
     Active Substance: DAPSONE
     Indication: Pyoderma gangrenosum
     Dosage: 7 WEEKS AGO
  2. PREDNISONE [Concomitant]
     Active Substance: PREDNISONE
     Indication: Pyoderma gangrenosum
     Dosage: 7 WEEKS AGO?DISCONTINUED 4 DAYS PRIOR TO SYMPTOMS

REACTIONS (3)
  - Hepatitis cholestatic [Unknown]
  - Granulomatous liver disease [Unknown]
  - Off label use [Unknown]
